FAERS Safety Report 8277402-9 (Version None)
Quarter: 2012Q2

REPORT INFORMATION
  Report Type: 
  Country: None (occurrence: None)
  Receive Date: 20120412
  Receipt Date: 20120404
  Transmission Date: 20120825
  Serious: Yes (Other)
  Sender: FDA-Public Use
  Company Number: PHEH2011US04228

PATIENT
  Sex: Male

DRUGS (9)
  1. ABILIFY [Concomitant]
  2. CLONIDINE [Concomitant]
     Dosage: UNK UKN, UNK
  3. AFINITOR [Suspect]
     Dosage: 40 MG, WEEK
     Route: 048
  4. LAMICTAL [Concomitant]
     Dosage: UNK UKN, UNK
  5. TRAZODONE HYDROCHLORIDE [Concomitant]
     Dosage: UNK UKN, UNK
  6. VITAMIN TAB [Concomitant]
  7. AFINITOR [Suspect]
     Indication: ASTROCYTOMA, LOW GRADE
     Dosage: 30 MG, WEEK
     Route: 048
     Dates: start: 20110625
  8. VIMPAT [Concomitant]
  9. CALCIUM CARBONATE [Concomitant]

REACTIONS (3)
  - AGGRESSION [None]
  - MALAISE [None]
  - CONVULSION [None]
